FAERS Safety Report 5101199-4 (Version None)
Quarter: 2006Q3

REPORT INFORMATION
  Report Type: 
  Country: None (occurrence: None)
  Receive Date: 20060906
  Receipt Date: 20060815
  Transmission Date: 20061208
  Serious: Yes (Death)
  Sender: FDA-Public Use
  Company Number: 0510016

PATIENT
  Sex: Male
  Weight: 0.4536 kg

DRUGS (1)
  1. NITISINONE/COMPASS USE [Suspect]
     Indication: TYROSINAEMIA
     Dosage: MG/KG /DAY 0.5
     Dates: start: 20050823, end: 20050826

REACTIONS (3)
  - COMA [None]
  - HEPATOSPLENOMEGALY [None]
  - HYPERAMMONAEMIA [None]
